FAERS Safety Report 6699553-2 (Version None)
Quarter: 2010Q2

REPORT INFORMATION
  Report Type: 
  Country: None (occurrence: None)
  Receive Date: 20100427
  Receipt Date: 20100427
  Transmission Date: 20101027
  Serious: No
  Sender: FDA-Public Use
  Company Number: None

PATIENT
  Age: 28 Year
  Sex: Female
  Weight: 56.6996 kg

DRUGS (1)
  1. MIRENA [Suspect]
     Indication: CONTRACEPTION
     Dates: start: 20090301, end: 20100426

REACTIONS (14)
  - ABDOMINAL PAIN [None]
  - ACNE [None]
  - AMNESIA [None]
  - ANXIETY [None]
  - BACK PAIN [None]
  - COITAL BLEEDING [None]
  - DEPRESSION [None]
  - DIZZINESS [None]
  - DYSPAREUNIA [None]
  - MALAISE [None]
  - MIGRAINE [None]
  - MOOD SWINGS [None]
  - MUSCLE SPASMS [None]
  - PALPITATIONS [None]
